FAERS Safety Report 8268299-1 (Version None)
Quarter: 2012Q2

REPORT INFORMATION
  Report Type: 
  Country: None (occurrence: None)
  Receive Date: 20120409
  Receipt Date: 20120402
  Transmission Date: 20120825
  Serious: Yes (Hospitalization)
  Sender: FDA-Public Use
  Company Number: GXKR2012DE001355

PATIENT

DRUGS (2)
  1. LAMOTRGINE [Suspect]
     Dosage: MATERNAL DOSE: 450 MG MILLGRAM(S) EVERY DAYS
     Route: 064
  2. LAMOTRGINE [Suspect]
     Dosage: MATERNAL DOSE: 500 MG/DAY
     Route: 064

REACTIONS (5)
  - BRADYCARDIA NEONATAL [None]
  - FOETAL EXPOSURE DURING PREGNANCY [None]
  - INFANTILE APNOEIC ATTACK [None]
  - CYANOSIS NEONATAL [None]
  - OXYGEN SATURATION DECREASED [None]
